FAERS Safety Report 24107894 (Version 1)
Quarter: 2024Q3

REPORT INFORMATION
  Report Type: Spontaneous
  Country: US (occurrence: US)
  Receive Date: 20240718
  Receipt Date: 20240718
  Transmission Date: 20241016
  Serious: No
  Sender: AMGEN
  Company Number: US-AMGEN-USASP2024141384

PATIENT
  Sex: Female

DRUGS (3)
  1. PROLIA [Suspect]
     Active Substance: DENOSUMAB
     Indication: Product used for unknown indication
     Dosage: 60 MILLIGRAM, Q6MO
     Route: 065
     Dates: start: 2023
  2. MELOXICAM [Concomitant]
     Active Substance: MELOXICAM
     Indication: Pain
  3. SYNTHROID [Concomitant]
     Active Substance: LEVOTHYROXINE SODIUM

REACTIONS (1)
  - Arthropathy [Unknown]
